FAERS Safety Report 19273172 (Version 3)
Quarter: 2021Q2

REPORT INFORMATION
  Report Type: Spontaneous
  Country: US (occurrence: US)
  Receive Date: 20210518
  Receipt Date: 20210607
  Transmission Date: 20210717
  Serious: Yes (Hospitalization)
  Sender: FDA-Public Use
  Company Number: US-CELLTRION INC.-2021US006645

PATIENT

DRUGS (4)
  1. INFLECTRA [Suspect]
     Active Substance: INFLIXIMAB-DYYB
     Dosage: 360 MG BASED ON 5MG/KG, WEIGHT: 70.5 KG (3RD INFUSION) RECEIVED HIS THIRD DOSE 2 WEEKS EARLY
     Route: 042
     Dates: start: 20210505
  2. INFLECTRA [Suspect]
     Active Substance: INFLIXIMAB-DYYB
     Indication: COLITIS ULCERATIVE
     Dosage: 370 MG BASED ON 5MG/KG, WEIGHT: 159 POUNDS (2ND INFUSION)
     Route: 042
     Dates: start: 20210421
  3. ELIQUIS [Concomitant]
     Active Substance: APIXABAN
  4. METOPROLOL SUCCINATE ER [Concomitant]
     Active Substance: METOPROLOL SUCCINATE

REACTIONS (9)
  - Malaise [Unknown]
  - Overdose [Unknown]
  - Hypovolaemia [Unknown]
  - Feeding disorder [Unknown]
  - Off label use [Unknown]
  - Diarrhoea [Unknown]
  - Abdominal pain upper [Unknown]
  - Weight decreased [Unknown]
  - Toxicity to various agents [Unknown]

NARRATIVE: CASE EVENT DATE: 20210421
